FAERS Safety Report 22094265 (Version 2)
Quarter: 2023Q2

REPORT INFORMATION
  Report Type: Report from Study
  Country: US (occurrence: US)
  Receive Date: 20230314
  Receipt Date: 20230421
  Transmission Date: 20230721
  Serious: Yes (Hospitalization, Other)
  Sender: FDA-Public Use
  Company Number: US-GILEAD-2023-0619929

PATIENT
  Age: 11 Year
  Sex: Female

DRUGS (5)
  1. AZTREONAM LYSINE [Suspect]
     Active Substance: AZTREONAM LYSINE
     Indication: Cystic fibrosis
     Dosage: 75 MG, TID,  FOR 28 DAYS ON AND 28 DAYS OFF
     Route: 055
     Dates: start: 20180228
  2. TOBRAMYCIN [Concomitant]
     Active Substance: TOBRAMYCIN
  3. ALBUTEROL SULFATE [Concomitant]
     Active Substance: ALBUTEROL SULFATE
  4. SODIUM CHLORIDE [Concomitant]
     Active Substance: SODIUM CHLORIDE
  5. PULMOZYME [Concomitant]
     Active Substance: DORNASE ALFA

REACTIONS (3)
  - Cystic fibrosis respiratory infection suppression [Unknown]
  - Lung disorder [Unknown]
  - Respiratory disorder [Unknown]
